FAERS Safety Report 20469226 (Version 1)
Quarter: 2022Q1

REPORT INFORMATION
  Report Type: Report from Study
  Country: US (occurrence: US)
  Receive Date: 20220214
  Receipt Date: 20220214
  Transmission Date: 20220424
  Serious: No
  Sender: FDA-Public Use
  Company Number: US-ORG100014127-2021001496

PATIENT
  Age: 38 Year
  Sex: Female

DRUGS (1)
  1. LYSODREN [Suspect]
     Active Substance: MITOTANE
     Dosage: 1 TAB TID FOR 3-4 DAYS, INCREASE BY 1 TAB EVERY 3 -4 DAYS TO A TOTAL OF 8 TO 10 TAB PER DAY.
     Route: 048
     Dates: start: 20211105, end: 20211129

REACTIONS (1)
  - Urticaria [Not Recovered/Not Resolved]

NARRATIVE: CASE EVENT DATE: 20211101
